FAERS Safety Report 25809940 (Version 2)
Quarter: 2025Q4

REPORT INFORMATION
  Report Type: Spontaneous
  Country: MY (occurrence: MY)
  Receive Date: 20250917
  Receipt Date: 20251017
  Transmission Date: 20260118
  Serious: Yes (Life-Threatening, Hospitalization, Other)
  Sender: ACCORD
  Company Number: MY-Accord-504220

PATIENT
  Age: 55 Year
  Sex: Male

DRUGS (1)
  1. ALLOPURINOL [Suspect]
     Active Substance: ALLOPURINOL
     Indication: Product used for unknown indication
     Dates: start: 202006

REACTIONS (8)
  - Stevens-Johnson syndrome [Recovered/Resolved]
  - Ocular pemphigoid [Recovered/Resolved]
  - Mouth ulceration [Recovering/Resolving]
  - Keratitis bacterial [Recovered/Resolved]
  - Pseudomonas infection [Recovered/Resolved]
  - Limbal stem cell deficiency [Recovering/Resolving]
  - Eye disorder [Recovering/Resolving]
  - Ocular surface disease [Recovering/Resolving]

NARRATIVE: CASE EVENT DATE: 20200601
